FAERS Safety Report 5390686-X (Version None)
Quarter: 2007Q3

REPORT INFORMATION
  Report Type: 
  Country: None (occurrence: None)
  Receive Date: 20070713
  Receipt Date: 20070627
  Transmission Date: 20080115
  Serious: Yes (Hospitalization)
  Sender: FDA-Public Use
  Company Number: WAES 0706ESP00052

PATIENT
  Age: 58 Year
  Sex: Male

DRUGS (7)
  1. COZAAR [Suspect]
     Indication: ESSENTIAL HYPERTENSION
     Dosage: 100 MG/DAILY, PO
     Route: 048
     Dates: end: 20070410
  2. RAMIPRIL [Suspect]
     Indication: ESSENTIAL HYPERTENSION
     Dosage: 10 ;MG, PO
     Route: 048
     Dates: end: 20070410
  3. IODINE [Suspect]
     Indication: DIAGNOSTIC PROCEDURE
     Dosage: IV
     Dates: start: 20070401, end: 20070401
  4. IODINE [Suspect]
     Indication: X-RAY
     Dosage: IV
     Dates: start: 20070401, end: 20070401
  5. ASPIRIN [Concomitant]
  6. ATORVASTATIN CALCIUM [Concomitant]
  7. CARVEDILOL [Concomitant]

REACTIONS (3)
  - DRUG INTERACTION [None]
  - HYPOKALAEMIA [None]
  - RENAL FAILURE ACUTE [None]
